FAERS Safety Report 6074640-0 (Version None)
Quarter: 2009Q1

REPORT INFORMATION
  Report Type: 
  Country: None (occurrence: None)
  Receive Date: 20090209
  Receipt Date: 20090209
  Transmission Date: 20090719
  Serious: Yes (Other)
  Sender: FDA-Public Use
  Company Number: None

PATIENT
  Age: 27 Year
  Sex: Female
  Weight: 63.5036 kg

DRUGS (1)
  1. CHANTIX [Suspect]
     Indication: SMOKING CESSATION THERAPY
     Dosage: 0.5 FOR ONE WEEK DAILY PO 1MG FOR ONE WEEK DAILY PO
     Route: 048
     Dates: start: 20070701, end: 20070714

REACTIONS (13)
  - ABNORMAL DREAMS [None]
  - DELUSION [None]
  - DEPRESSION [None]
  - DISTURBANCE IN ATTENTION [None]
  - FAMILY STRESS [None]
  - IMPAIRED WORK ABILITY [None]
  - INSOMNIA [None]
  - LAZINESS [None]
  - LEARNING DISORDER [None]
  - NIGHTMARE [None]
  - PARANOIA [None]
  - TACHYPHRENIA [None]
  - THINKING ABNORMAL [None]
